FAERS Safety Report 14882049 (Version 2)
Quarter: 2018Q2

REPORT INFORMATION
  Report Type: Report from Study
  Country: US (occurrence: BW)
  Receive Date: 20180511
  Receipt Date: 20180516
  Transmission Date: 20180711
  Serious: Yes (Congenital Anomaly, Other)
  Sender: FDA-Public Use
  Company Number: US-VIIV HEALTHCARE LIMITED-BW2018GSK083007

PATIENT
  Age: 12 Month

DRUGS (2)
  1. METHYLDOPA. [Concomitant]
     Active Substance: METHYLDOPA
     Dosage: UNK
     Route: 064
     Dates: start: 20180131, end: 20180416
  2. DOLUTEGRAVIR [Suspect]
     Active Substance: DOLUTEGRAVIR
     Dosage: UNK
     Route: 064
     Dates: start: 20160620

REACTIONS (2)
  - Encephalocele [Unknown]
  - Foetal exposure during pregnancy [Unknown]

NARRATIVE: CASE EVENT DATE: 20180416
